FAERS Safety Report 11622399 (Version 3)
Quarter: 2015Q4

REPORT INFORMATION
  Report Type: Report from Study
  Country: US (occurrence: US)
  Receive Date: 20151013
  Receipt Date: 20151102
  Transmission Date: 20160304
  Serious: Yes (Other)
  Sender: FDA-Public Use
  Company Number: US-GILEAD-2015-0175908

PATIENT
  Age: 67 Year
  Sex: Female

DRUGS (2)
  1. REMODULIN [Suspect]
     Active Substance: TREPROSTINIL
     Indication: PRODUCT USED FOR UNKNOWN INDICATION
     Dosage: UNK
     Route: 065
  2. AMBRISENTAN [Suspect]
     Active Substance: AMBRISENTAN
     Indication: PRODUCT USED FOR UNKNOWN INDICATION
     Dosage: 5 MG, QD
     Route: 065
     Dates: start: 20120510

REACTIONS (8)
  - Headache [Unknown]
  - Migraine [Unknown]
  - Dysentery [Unknown]
  - Infusion site erythema [Unknown]
  - Infusion site pain [Unknown]
  - Diarrhoea [Unknown]
  - Vomiting [Unknown]
  - Infusion site swelling [Unknown]
